FAERS Safety Report 4388382-0 (Version None)
Quarter: 2004Q3

REPORT INFORMATION
  Report Type: 
  Country: None (occurrence: None)
  Receive Date: 20040701
  Receipt Date: 20040623
  Transmission Date: 20050211
  Serious: Yes (Other)
  Sender: FDA-Public Use
  Company Number: IE-BRISTOL-MYERS SQUIBB COMPANY-12623120

PATIENT
  Age: 75 Year
  Sex: Female

DRUGS (8)
  1. PRAVASTATIN [Suspect]
     Indication: CORONARY ARTERY SURGERY
     Route: 048
     Dates: start: 20040506
  2. FOSAMAX [Concomitant]
  3. CALCICHEW D3 [Concomitant]
  4. ADALAT CC [Concomitant]
  5. ASPIRIN [Concomitant]
  6. LASIX [Concomitant]
  7. NORTEM [Concomitant]
  8. IPRAL [Concomitant]

REACTIONS (2)
  - BLOOD UREA INCREASED [None]
  - RENAL IMPAIRMENT [None]
